FAERS Safety Report 5473663-X (Version None)
Quarter: 2007Q4

REPORT INFORMATION
  Report Type: 
  Country: None (occurrence: None)
  Receive Date: 20071001
  Receipt Date: 20070917
  Transmission Date: 20080405
  Serious: No
  Sender: FDA-Public Use
  Company Number: US-BOEHRINGER INGELHEIM PHARMACEUTICALS, INC.-2007-BP-21223BP

PATIENT
  Age: 63 Year
  Sex: Female

DRUGS (4)
  1. SPIRIVA [Suspect]
     Indication: CHRONIC OBSTRUCTIVE PULMONARY DISEASE
     Route: 055
     Dates: start: 20070907
  2. SYMBICORT [Suspect]
     Dates: start: 20070907
  3. LOTREL [Concomitant]
  4. SYNTHROID [Concomitant]

REACTIONS (1)
  - SENSITIVITY OF TEETH [None]
